FAERS Safety Report 16289852 (Version 1)
Quarter: 2019Q2

REPORT INFORMATION
  Report Type: Spontaneous
  Country: US (occurrence: US)
  Receive Date: 20190508
  Receipt Date: 20190508
  Transmission Date: 20190711
  Serious: Yes (Life-Threatening)
  Sender: FDA-Public Use
  Company Number: None

PATIENT
  Age: 95 Year
  Sex: Female
  Weight: 69 kg

DRUGS (10)
  1. ATORVASTATIN 40MG [Concomitant]
     Active Substance: ATORVASTATIN
     Dates: start: 20190507, end: 20190507
  2. NITROPRUSSIDE 50MG/250ML INFUSION [Concomitant]
     Dates: start: 20190507, end: 20190508
  3. DEXAMETHASONE 10MG IVP X1 [Concomitant]
     Dates: start: 20190507, end: 20190507
  4. PROPOFOL 1000 MG/100ML INFUSION [Concomitant]
     Dates: start: 20190507, end: 20190508
  5. ALTEPLASE. [Suspect]
     Active Substance: ALTEPLASE
     Indication: ISCHAEMIC STROKE
     Dosage: ?          OTHER FREQUENCY:ONCE;?
     Route: 041
  6. LABETALOL 10MG IVP ONCE [Concomitant]
     Dates: start: 20190507, end: 20190507
  7. FAMOTIDINE 20MG IVP Q12H [Concomitant]
     Dates: end: 20190507
  8. LIDOCAINE 100MG/5ML IVP X1 [Concomitant]
     Dates: start: 20190507, end: 20190507
  9. IOPAMIDOL 75ML (CONTRAST MEDIA) [Concomitant]
     Dates: start: 20190507, end: 20190507
  10. LEVETIRACETAM 1000MG IVPB X1 [Concomitant]
     Dates: start: 20190507, end: 20190507

REACTIONS (3)
  - Haemorrhage intracranial [None]
  - Rectal haemorrhage [None]
  - Cerebrovascular accident [None]

NARRATIVE: CASE EVENT DATE: 20190507
